FAERS Safety Report 20699778 (Version 5)
Quarter: 2023Q4

REPORT INFORMATION
  Report Type: Other
  Country: DE (occurrence: None)
  Receive Date: 20220412
  Receipt Date: 20231214
  Transmission Date: 20240109
  Serious: Yes (Hospitalization)
  Sender: FDA-Public Use
  Company Number: DE-ROCHE-3070867

PATIENT
  Age: 49 Year
  Sex: Female
  Weight: 68 kg

DRUGS (4)
  1. OCREVUS [Suspect]
     Active Substance: OCRELIZUMAB
     Indication: Relapsing multiple sclerosis
     Route: 042
     Dates: start: 20210112, end: 20210126
  2. OCREVUS [Suspect]
     Active Substance: OCRELIZUMAB
     Dosage: MOST RECENT DOSE RECEIVED ON 05/MAY/2022
     Route: 042
     Dates: start: 20210802
  3. KESIMPTA [Suspect]
     Active Substance: OFATUMUMAB
     Indication: Relapsing multiple sclerosis
     Route: 065
     Dates: start: 20221114
  4. FLOXAL [Concomitant]
     Active Substance: OFLOXACIN
     Indication: Keratitis
     Route: 001
     Dates: end: 202107

REACTIONS (3)
  - Blood loss anaemia [Recovered/Resolved]
  - COVID-19 [Recovered/Resolved]
  - Vulvovaginal injury [Recovered/Resolved]

NARRATIVE: CASE EVENT DATE: 20220330
